FAERS Safety Report 20756539 (Version 1)
Quarter: 2022Q2

REPORT INFORMATION
  Report Type: Spontaneous
  Country: None (occurrence: A1)
  Receive Date: 20220427
  Receipt Date: 20220427
  Transmission Date: 20220721
  Serious: Yes (Other)
  Sender: FDA-Public Use
  Company Number: A1-Avion Pharmaceuticals, LLC-2128190

PATIENT
  Age: 32 Year
  Sex: Female

DRUGS (2)
  1. MEFENAMIC ACID [Suspect]
     Active Substance: MEFENAMIC ACID
     Indication: Pain management
     Route: 065
  2. CEFTRIAXONE [Concomitant]
     Active Substance: CEFTRIAXONE
     Route: 065

REACTIONS (12)
  - Anaphylactic reaction [Unknown]
  - Seizure [Unknown]
  - Rash pruritic [Unknown]
  - Headache [Unknown]
  - Vomiting [Unknown]
  - Lethargy [Unknown]
  - Syncope [Unknown]
  - Asthenia [Unknown]
  - Dyskinesia [Unknown]
  - Communication disorder [Unknown]
  - Epilepsy [Unknown]
  - Conversion disorder [Unknown]
